FAERS Safety Report 13321302 (Version 1)
Quarter: 2017Q1

REPORT INFORMATION
  Report Type: Spontaneous
  Country: JP (occurrence: JP)
  Receive Date: 20170309
  Receipt Date: 20170309
  Transmission Date: 20170428
  Serious: Yes (Other)
  Sender: FDA-Public Use
  Company Number: PHJP2017JP001330

PATIENT
  Age: 67 Year
  Sex: Female

DRUGS (2)
  1. AFINITOR [Suspect]
     Active Substance: EVEROLIMUS
     Dosage: 1 DF, UNK
     Route: 048
     Dates: start: 201305, end: 201308
  2. AFINITOR [Suspect]
     Active Substance: EVEROLIMUS
     Indication: NEUROENDOCRINE TUMOUR
     Dosage: 10 MG, QD
     Route: 048
     Dates: start: 201211

REACTIONS (16)
  - Concomitant disease aggravated [Unknown]
  - Dysgeusia [Unknown]
  - Hepatic function abnormal [Unknown]
  - Malignant neoplasm progression [Unknown]
  - Glucose tolerance impaired [Recovered/Resolved]
  - Ascites [Unknown]
  - Metastases to lymph nodes [Unknown]
  - Pruritus [Unknown]
  - Metastases to lung [Unknown]
  - Therapeutic response decreased [Unknown]
  - Pleural effusion [Unknown]
  - Metastases to liver [Unknown]
  - Glossitis [Recovered/Resolved]
  - Dyslipidaemia [Unknown]
  - Oedema peripheral [Unknown]
  - Rash [Recovered/Resolved]

NARRATIVE: CASE EVENT DATE: 201211
